FAERS Safety Report 16712999 (Version 1)
Quarter: 2019Q3

REPORT INFORMATION
  Report Type: Spontaneous
  Country: US (occurrence: US)
  Receive Date: 20190817
  Receipt Date: 20190817
  Transmission Date: 20191004
  Serious: No
  Sender: FDA-Public Use
  Company Number: US-AUROBINDO-AUR-APL-2019-029405

PATIENT

DRUGS (11)
  1. AMPYRA [Suspect]
     Active Substance: DALFAMPRIDINE
     Indication: GAIT DISTURBANCE
     Dosage: 10 MILLIGRAM, TWO TIMES A DAY, STARTED 2 YEARS AGO
     Route: 048
  2. IBUPROFEN. [Concomitant]
     Active Substance: IBUPROFEN
     Indication: PRODUCT USED FOR UNKNOWN INDICATION
     Dosage: UNK
     Route: 065
  3. TECFIDERA [Suspect]
     Active Substance: DIMETHYL FUMARATE
     Indication: MULTIPLE SCLEROSIS
     Dosage: 240 MILLIGRAM, TWO TIMES A DAY
     Route: 048
     Dates: start: 20160224
  4. CLONAZEPAM. [Interacting]
     Active Substance: CLONAZEPAM
     Indication: INSOMNIA
     Dosage: UNK
     Route: 065
  5. VITAMIN D3 [Concomitant]
     Active Substance: CHOLECALCIFEROL
     Indication: PRODUCT USED FOR UNKNOWN INDICATION
     Dosage: UNK
     Route: 065
  6. AMPYRA [Suspect]
     Active Substance: DALFAMPRIDINE
     Indication: MULTIPLE SCLEROSIS
     Dosage: 10 MILLIGRAM, TWO TIMES A DAY
     Route: 048
     Dates: end: 201904
  7. DALFAMPRIDINE. [Suspect]
     Active Substance: DALFAMPRIDINE
     Dosage: 10 MILLIGRAM, TWO TIMES A DAY
     Route: 048
     Dates: start: 201904, end: 2019
  8. GABAPENTIN. [Concomitant]
     Active Substance: GABAPENTIN
     Indication: PRODUCT USED FOR UNKNOWN INDICATION
     Dosage: UNK
     Route: 065
  9. DALFAMPRIDINE. [Suspect]
     Active Substance: DALFAMPRIDINE
     Indication: MULTIPLE SCLEROSIS
     Dosage: 10 MILLIGRAM, TWO TIMES A DAY, FOR TWO DAYS
     Route: 048
     Dates: start: 2018
  10. DEXTROAMPHETAMINE. [Concomitant]
     Active Substance: DEXTROAMPHETAMINE
     Indication: PRODUCT USED FOR UNKNOWN INDICATION
     Dosage: UNK
     Route: 065
  11. CLONAZEPAM. [Interacting]
     Active Substance: CLONAZEPAM
     Indication: ANXIETY

REACTIONS (9)
  - Chest pain [Recovered/Resolved]
  - Throat tightness [Recovered/Resolved]
  - Dyspepsia [Recovered/Resolved]
  - Abdominal pain [Recovered/Resolved]
  - Drug interaction [Recovered/Resolved]
  - Insomnia [Recovered/Resolved]
  - Constipation [Recovered/Resolved]
  - Anxiety [Recovered/Resolved]
  - Therapy cessation [Recovered/Resolved]

NARRATIVE: CASE EVENT DATE: 20181007
